FAERS Safety Report 10449305 (Version 1)
Quarter: 2014Q3

REPORT INFORMATION
  Report Type: Spontaneous
  Country: US (occurrence: None)
  Receive Date: 20140911
  Receipt Date: 20140911
  Transmission Date: 20150326
  Serious: No
  Sender: FDA-Public Use
  Company Number: None

PATIENT
  Age: 47 Year
  Sex: Female
  Weight: 54.43 kg

DRUGS (11)
  1. VYVANSE [Concomitant]
     Active Substance: LISDEXAMFETAMINE DIMESYLATE
  2. LAMICTAL [Concomitant]
     Active Substance: LAMOTRIGINE
  3. BIOTIN [Concomitant]
     Active Substance: BIOTIN
  4. TUMERIC [Concomitant]
  5. DEX/AMPH SLT CO ER20MG BARR GENERIC FOR ADDERALL XR 20MG [Suspect]
     Active Substance: AMPHETAMINE ASPARTATE\AMPHETAMINE SULFATE\DEXTROAMPHETAMINE SACCHARATE\DEXTROAMPHETAMINE SULFATE
     Indication: NARCOLEPSY
     Dosage: 2 PILLS  1 TIME A DAY  BY MOUTH
     Route: 048
     Dates: start: 20140731, end: 20140810
  6. DEX/AMPH SLT CO ER20MG BARR GENERIC FOR ADDERALL XR 20MG [Suspect]
     Active Substance: AMPHETAMINE ASPARTATE\AMPHETAMINE SULFATE\DEXTROAMPHETAMINE SACCHARATE\DEXTROAMPHETAMINE SULFATE
     Indication: ATTENTION DEFICIT/HYPERACTIVITY DISORDER
     Dosage: 2 PILLS  1 TIME A DAY  BY MOUTH
     Route: 048
     Dates: start: 20140731, end: 20140810
  7. CLONZAPAM [Concomitant]
  8. VITAMIN E [Concomitant]
     Active Substance: .ALPHA.-TOCOPHEROL
  9. KRILL OIL OMEGA 3 [Concomitant]
  10. MULTI-VITAMIN [Concomitant]
     Active Substance: .ALPHA.-TOCOPHEROL ACETATE, DL-\ASCORBIC ACID\CYANOCOBALAMIN\FLUORIDE ION\FOLIC ACID\NIACIN\PYRIDOXINE\RIBOFLAVIN\THIAMINE\VITAMIN A\VITAMIN D
  11. VITAMIN B12 [Concomitant]
     Active Substance: CYANOCOBALAMIN

REACTIONS (4)
  - Product substitution issue [None]
  - Nausea [None]
  - Depression [None]
  - Somnolence [None]

NARRATIVE: CASE EVENT DATE: 20140731
